FAERS Safety Report 7504465-8 (Version None)
Quarter: 2011Q2

REPORT INFORMATION
  Report Type: 
  Country: None (occurrence: None)
  Receive Date: 20110525
  Receipt Date: 20091104
  Transmission Date: 20111010
  Serious: Yes (Other)
  Sender: FDA-Public Use
  Company Number: US-BAYER-200939387NA

PATIENT
  Age: 53 Year
  Sex: Female
  Weight: 81.633 kg

DRUGS (19)
  1. NOLVADEX [Concomitant]
     Dosage: 20 MG, QD
     Route: 048
  2. AVAPRO [Concomitant]
     Dosage: 75 MG, QD
     Route: 048
  3. ELAVIL [Concomitant]
     Dosage: 100 MG, HS
     Route: 048
  4. ZEBETA [Concomitant]
     Dosage: 5 MG, QD
     Route: 048
  5. CYCLOBENZAPRINE [Concomitant]
     Dosage: 30 MG, HS
     Route: 048
  6. RESTORIL [Concomitant]
     Dosage: 15 MG, 1-2 PRN
     Route: 048
  7. LASIX [Concomitant]
     Indication: CARDIAC FAILURE CONGESTIVE
     Dosage: 40 MG, QD
     Route: 048
  8. RANITIDINE [Concomitant]
     Dosage: 300 MG, QD
     Route: 048
  9. NITROGLYCERIN [Concomitant]
     Dosage: 0.4 MG, PRN
     Route: 060
  10. NEURONTIN [Concomitant]
     Dosage: 300 UNK, TID
     Route: 048
  11. AMBIEN [Concomitant]
     Dosage: 10 MG, HS
     Route: 048
  12. GLUCOPHAGE [Concomitant]
     Dosage: 850 MG, BID
     Route: 048
  13. TRASYLOL [Suspect]
     Indication: CORONARY ARTERY BYPASS
     Dates: start: 20001024
  14. MEGACE [Concomitant]
     Dosage: 20 MG, QD
     Route: 048
  15. SLOW MAG [Concomitant]
     Dosage: 64 MG, ONE TO TWO QD
     Route: 048
  16. KLONOPIN [Concomitant]
     Dosage: 0.5 MG, HS
     Route: 048
  17. ACETAMINOPHEN AND HYDROCODONE BITARTRATE [Concomitant]
     Dosage: 10/500 UNK, PRN
     Route: 048
  18. OMNIPAQUE 140 [Concomitant]
     Indication: CATHETERISATION CARDIAC
     Dosage: 95 ML, UNK
     Dates: start: 20001017
  19. CEREBREX [Concomitant]
     Indication: ARTHRITIS
     Dosage: 200 MG, 2 DAILY
     Route: 048

REACTIONS (6)
  - INJURY [None]
  - EMOTIONAL DISTRESS [None]
  - ANXIETY [None]
  - PAIN [None]
  - DEPRESSION [None]
  - CEREBROVASCULAR ACCIDENT [None]
